FAERS Safety Report 10447245 (Version 1)
Quarter: 2014Q3

REPORT INFORMATION
  Report Type: Spontaneous
  Country: US (occurrence: US)
  Receive Date: 20140911
  Receipt Date: 20140911
  Transmission Date: 20150326
  Serious: Yes (Other)
  Sender: FDA-Public Use
  Company Number: US-MYLANLABS-2014M1003248

PATIENT

DRUGS (4)
  1. AMNESTEEM [Suspect]
     Active Substance: ISOTRETINOIN
     Indication: OFF LABEL USE
  2. ACCUTANE [Suspect]
     Active Substance: ISOTRETINOIN
     Indication: SKIN INFECTION
     Dosage: UNK
     Route: 048
     Dates: start: 2006
  3. AMNESTEEM [Suspect]
     Active Substance: ISOTRETINOIN
     Indication: SKIN INFECTION
     Dosage: 40 MG, QD
     Route: 048
     Dates: end: 201408
  4. ACCUTANE [Suspect]
     Active Substance: ISOTRETINOIN
     Indication: OFF LABEL USE

REACTIONS (6)
  - Hypothyroidism [Not Recovered/Not Resolved]
  - Mucosal dryness [Not Recovered/Not Resolved]
  - Dry skin [Not Recovered/Not Resolved]
  - Benign salivary gland neoplasm [Recovered/Resolved]
  - Surgery [Recovered/Resolved]
  - Gastrointestinal disorder [Not Recovered/Not Resolved]
